FAERS Safety Report 7483109-8 (Version None)
Quarter: 2011Q2

REPORT INFORMATION
  Report Type: 
  Country: None (occurrence: None)
  Receive Date: 20110516
  Receipt Date: 20101013
  Transmission Date: 20111010
  Serious: Yes (Life-Threatening)
  Sender: FDA-Public Use
  Company Number: JP-AMGEN-US343250

PATIENT
  Age: 50 Year
  Sex: Female

DRUGS (7)
  1. ENBREL [Suspect]
     Dosage: 25 MG, 2 TIMES/WK
     Route: 058
     Dates: start: 20080407
  2. ALINAMIN F [Concomitant]
     Route: 048
  3. VITAMEDIN [Concomitant]
     Route: 048
  4. ENBREL [Suspect]
     Dosage: 25 MG, 2 TIMES/WK
     Route: 058
     Dates: end: 20090324
  5. GLAKAY [Concomitant]
     Route: 048
  6. ISONIAZID [Concomitant]
     Indication: ANTIBIOTIC PROPHYLAXIS
     Route: 048
     Dates: start: 20080219, end: 20080722
  7. ALINAMIN F [Concomitant]
     Dosage: 25 MG, TID
     Route: 048

REACTIONS (3)
  - LYMPH NODE TUBERCULOSIS [None]
  - VULVAL ULCERATION [None]
  - TUBERCULOSIS [None]
